FAERS Safety Report 23691425 (Version 1)
Quarter: 2024Q2

REPORT INFORMATION
  Report Type: Spontaneous
  Country: ES (occurrence: ES)
  Receive Date: 20240401
  Receipt Date: 20240401
  Transmission Date: 20240716
  Serious: Yes (Hospitalization)
  Sender: FDA-Public Use
  Company Number: None

PATIENT
  Age: 37 Year
  Sex: Female

DRUGS (4)
  1. LEVOFLOXACIN [Suspect]
     Active Substance: LEVOFLOXACIN
     Indication: Tuberculosis
     Dosage: LEVOFLOXACINO 500 MG TABLET
     Route: 048
     Dates: start: 20230911, end: 20230913
  2. RIMSTAR [Suspect]
     Active Substance: ETHAMBUTOL\ISONIAZID\PYRAZINAMIDE\RIFAMYCIN
     Indication: Tuberculosis
     Dosage: 60 TABLETS
     Route: 048
     Dates: start: 20230829, end: 20230910
  3. MYAMBUTOL [Suspect]
     Active Substance: ETHAMBUTOL HYDROCHLORIDE
     Indication: Tuberculosis
     Dosage: MYAMBUTOL 400 MG COATED TABLETS, 100 TABLETS
     Route: 048
     Dates: start: 20230911, end: 20230913
  4. ISONIAZID\RIFAMPIN [Suspect]
     Active Substance: ISONIAZID\RIFAMPIN
     Indication: Tuberculosis
     Dosage: RIFINAH 300 MG/150 MG FILM-COATED TABLETS, 60 TABLETS
     Route: 048
     Dates: start: 20230911, end: 20230913

REACTIONS (1)
  - Thrombocytopenia [Recovered/Resolved]

NARRATIVE: CASE EVENT DATE: 20230913
